FAERS Safety Report 8533021-8 (Version None)
Quarter: 2012Q2

REPORT INFORMATION
  Report Type: 
  Country: None (occurrence: None)
  Receive Date: 20120412
  Receipt Date: 20100606
  Transmission Date: 20120825
  Serious: Yes (Hospitalization)
  Sender: FDA-Public Use
  Company Number: PHHY2010US38178

PATIENT
  Age: 55 Year
  Sex: Female

DRUGS (1)
  1. ESTALIS COMBIPATCH (ESTRADIOL, NORETHISTERONE ACETATE) UNKNOWN [Suspect]
     Dosage: 50/140 TWICE WEEKLY, TRANSDERMAL
     Route: 062

REACTIONS (1)
  - DEPRESSION [None]
